FAERS Safety Report 14106399 (Version 1)
Quarter: 2017Q4

REPORT INFORMATION
  Report Type: Spontaneous
  Country: US (occurrence: US)
  Receive Date: 20171019
  Receipt Date: 20171019
  Transmission Date: 20180321
  Serious: Yes (Other)
  Sender: FDA-Public Use
  Company Number: US-BAXTER-2017BAX035736

PATIENT
  Sex: Female

DRUGS (28)
  1. MESNA FOR INJECTION 1 GRAM [Suspect]
     Active Substance: MESNA
     Indication: PRODUCT USED FOR UNKNOWN INDICATION
     Dosage: FIRST CYCLE
     Route: 065
  2. TAXOTERE [Concomitant]
     Active Substance: DOCETAXEL
     Indication: LEIOMYOSARCOMA
     Route: 065
  3. TAXOTERE [Concomitant]
     Active Substance: DOCETAXEL
     Indication: NEOPLASM MALIGNANT
  4. TAXOTERE [Concomitant]
     Active Substance: DOCETAXEL
     Indication: METASTASES TO LUNG
  5. TAXOTERE [Concomitant]
     Active Substance: DOCETAXEL
     Indication: METASTASES TO LIVER
  6. TAXOTERE [Concomitant]
     Active Substance: DOCETAXEL
     Indication: RECURRENT CANCER
  7. DECADRON [Concomitant]
     Active Substance: DEXAMETHASONE
     Indication: LEIOMYOSARCOMA
     Route: 042
  8. MESNA FOR INJECTION 1 GRAM [Suspect]
     Active Substance: MESNA
     Dosage: SECOND CYCLE
     Route: 065
  9. GEMZAR [Concomitant]
     Active Substance: GEMCITABINE HYDROCHLORIDE
     Indication: RECURRENT CANCER
  10. DECADRON [Concomitant]
     Active Substance: DEXAMETHASONE
     Indication: METASTASES TO LUNG
  11. DECADRON [Concomitant]
     Active Substance: DEXAMETHASONE
     Indication: ADRENAL GLAND CANCER
  12. DECADRON [Concomitant]
     Active Substance: DEXAMETHASONE
     Indication: RECURRENT CANCER
  13. IFEX [Suspect]
     Active Substance: IFOSFAMIDE
     Indication: RECURRENT CANCER
  14. GEMZAR [Concomitant]
     Active Substance: GEMCITABINE HYDROCHLORIDE
     Indication: ADRENAL GLAND CANCER
  15. TAXOTERE [Concomitant]
     Active Substance: DOCETAXEL
     Indication: ADRENAL GLAND CANCER
  16. DECADRON [Concomitant]
     Active Substance: DEXAMETHASONE
     Indication: METASTASES TO LIVER
  17. IFEX [Suspect]
     Active Substance: IFOSFAMIDE
     Indication: RECURRENT CANCER
     Dosage: SECOND CYCLE
     Route: 065
  18. IFEX [Suspect]
     Active Substance: IFOSFAMIDE
     Indication: HEPATIC CANCER RECURRENT
  19. GEMZAR [Concomitant]
     Active Substance: GEMCITABINE HYDROCHLORIDE
     Indication: LEIOMYOSARCOMA
     Route: 065
  20. GEMZAR [Concomitant]
     Active Substance: GEMCITABINE HYDROCHLORIDE
     Indication: NEOPLASM MALIGNANT
  21. GEMZAR [Concomitant]
     Active Substance: GEMCITABINE HYDROCHLORIDE
     Indication: METASTASES TO LUNG
  22. IFEX [Suspect]
     Active Substance: IFOSFAMIDE
     Indication: LUNG CARCINOMA CELL TYPE UNSPECIFIED RECURRENT
  23. GEMZAR [Concomitant]
     Active Substance: GEMCITABINE HYDROCHLORIDE
     Indication: METASTASES TO LIVER
  24. DECADRON [Concomitant]
     Active Substance: DEXAMETHASONE
     Indication: BONE CANCER
  25. DECADRON [Concomitant]
     Active Substance: DEXAMETHASONE
     Indication: NEOPLASM MALIGNANT
  26. IFEX [Suspect]
     Active Substance: IFOSFAMIDE
     Indication: LEIOMYOSARCOMA
     Dosage: FIRST CYCLE
     Route: 065
  27. IFEX [Suspect]
     Active Substance: IFOSFAMIDE
     Indication: RECURRENT CANCER
  28. DECADRON [Concomitant]
     Active Substance: DEXAMETHASONE
     Indication: METASTASES TO BONE

REACTIONS (3)
  - Neurotoxicity [Recovered/Resolved]
  - Neutropenia [Unknown]
  - Confusional state [Recovered/Resolved]
